FAERS Safety Report 6857140-7 (Version None)
Quarter: 2010Q3

REPORT INFORMATION
  Report Type: 
  Country: None (occurrence: None)
  Receive Date: 20100719
  Receipt Date: 20100713
  Transmission Date: 20110219
  Serious: Yes (Hospitalization)
  Sender: FDA-Public Use
  Company Number: B0666015A

PATIENT
  Age: 12 Year
  Sex: Female

DRUGS (1)
  1. AUGMENTIN '125' [Suspect]
     Indication: PHARYNGITIS
     Dosage: 2G PER DAY
     Route: 065
     Dates: start: 20100707

REACTIONS (2)
  - DRUG INEFFECTIVE [None]
  - SYNCOPE [None]
